FAERS Safety Report 14878540 (Version 1)
Quarter: 2018Q2

REPORT INFORMATION
  Report Type: Spontaneous
  Country: US (occurrence: US)
  Receive Date: 20180511
  Receipt Date: 20180511
  Transmission Date: 20180711
  Serious: Yes (Life-Threatening)
  Sender: FDA-Public Use
  Company Number: US-SUN PHARMACEUTICAL INDUSTRIES LTD-2018US-171640

PATIENT
  Age: 62 Year
  Sex: Female

DRUGS (1)
  1. DECITABINE. [Suspect]
     Active Substance: DECITABINE
     Indication: ACUTE MYELOID LEUKAEMIA
     Dosage: 20 MG/M X 10 DAYS FOR TWO CYCLES
     Route: 065

REACTIONS (2)
  - Cardiomyopathy [Recovering/Resolving]
  - Left ventricular dysfunction [Recovering/Resolving]
